FAERS Safety Report 18013048 (Version 8)
Quarter: 2020Q4

REPORT INFORMATION
  Report Type: Spontaneous
  Country: US (occurrence: US)
  Receive Date: 20200713
  Receipt Date: 20201217
  Transmission Date: 20210113
  Serious: Yes (Hospitalization)
  Sender: FDA-Public Use
  Company Number: US-PFIZER INC-2020263343

PATIENT
  Age: 64 Year
  Sex: Male
  Weight: 65.77 kg

DRUGS (6)
  1. LORAZEPAM. [Concomitant]
     Active Substance: LORAZEPAM
     Indication: MUSCLE SPASMS
     Dosage: 0.5 MG, ONCE DAILY AT NIGHT
     Route: 048
  2. LYRICA [Suspect]
     Active Substance: PREGABALIN
     Indication: FIBROMYALGIA
  3. LYRICA [Suspect]
     Active Substance: PREGABALIN
     Indication: BACK DISORDER
  4. LYRICA [Suspect]
     Active Substance: PREGABALIN
     Indication: TREMOR
  5. LYRICA [Suspect]
     Active Substance: PREGABALIN
     Indication: NEUROPATHY PERIPHERAL
     Dosage: 300 MG, TWICE DAILY
     Route: 048
     Dates: start: 2008
  6. NORCO [Concomitant]
     Active Substance: ACETAMINOPHEN\HYDROCODONE BITARTRATE
     Indication: PAIN
     Dosage: 5 MG, 3 TO 4 TIMES DAILY, AS NEEDED

REACTIONS (4)
  - Hypoacusis [Unknown]
  - Therapeutic response unexpected [Unknown]
  - Illness [Unknown]
  - Withdrawal syndrome [Unknown]
